FAERS Safety Report 16155821 (Version 1)
Quarter: 2019Q2

REPORT INFORMATION
  Report Type: Spontaneous
  Country: US (occurrence: US)
  Receive Date: 20190404
  Receipt Date: 20190404
  Transmission Date: 20190711
  Serious: No
  Sender: FDA-Public Use
  Company Number: US-CIPLA LTD.-2018US17125

PATIENT

DRUGS (1)
  1. SERTRALINE [Suspect]
     Active Substance: SERTRALINE HYDROCHLORIDE
     Indication: PRODUCT USED FOR UNKNOWN INDICATION
     Dosage: 50 MG, DAILY
     Route: 065

REACTIONS (7)
  - Drug ineffective [Unknown]
  - Product substitution issue [Unknown]
  - Agitation [Unknown]
  - Headache [Unknown]
  - Muscle tightness [Unknown]
  - Feeling abnormal [Unknown]
  - Chest discomfort [Unknown]
